FAERS Safety Report 14261389 (Version 1)
Quarter: 2017Q4

REPORT INFORMATION
  Report Type: Spontaneous
  Country: US (occurrence: US)
  Receive Date: 20171208
  Receipt Date: 20171208
  Transmission Date: 20180321
  Serious: No
  Sender: FDA-Public Use
  Company Number: US-CIPLA LTD.-2017US01487

PATIENT

DRUGS (9)
  1. ALPRAZOLAM. [Concomitant]
     Active Substance: ALPRAZOLAM
     Indication: NERVOUS SYSTEM DISORDER
     Dosage: 0.5 MG, BID
     Route: 065
  2. GABAPENTIN. [Suspect]
     Active Substance: GABAPENTIN
     Indication: NEUROPATHY PERIPHERAL
     Dosage: UNK, 300 MG CAPSULES
     Route: 065
  3. ALPRAZOLAM. [Concomitant]
     Active Substance: ALPRAZOLAM
     Indication: STRESS
  4. VOLTAREN [Concomitant]
     Active Substance: DICLOFENAC SODIUM
     Indication: NEUROPATHY PERIPHERAL
     Dosage: UNK
     Route: 065
  5. PRAMIPEXOLE DIHYDROCHLORIDE. [Concomitant]
     Active Substance: PRAMIPEXOLE DIHYDROCHLORIDE
     Indication: RESTLESS LEGS SYNDROME
     Dosage: 0.25 MG, TID
     Route: 065
  6. NIFEDIPINE. [Concomitant]
     Active Substance: NIFEDIPINE
     Indication: HYPERTENSION
     Dosage: 10 MG, TID
     Route: 065
  7. GABAPENTIN. [Suspect]
     Active Substance: GABAPENTIN
     Indication: RESTLESS LEGS SYNDROME
     Dosage: UNK, 100 MG CAPSULES, 2 TIMES A DAY
     Route: 048
     Dates: start: 2010
  8. ATORVASTATIN CALCIUM. [Concomitant]
     Active Substance: ATORVASTATIN CALCIUM
     Indication: BLOOD CHOLESTEROL INCREASED
     Dosage: 20 MG, QD (ONE TABLET A DAY)
     Route: 065
  9. EFFIENT [Concomitant]
     Active Substance: PRASUGREL HYDROCHLORIDE
     Indication: ANTICOAGULANT THERAPY
     Dosage: 5 MG, QD (ONE TABLET A DAY)
     Route: 065

REACTIONS (3)
  - Pain in extremity [Not Recovered/Not Resolved]
  - Drug ineffective [Unknown]
  - Product quality issue [Unknown]

NARRATIVE: CASE EVENT DATE: 2016
